FAERS Safety Report 13794410 (Version 1)
Quarter: 2017Q3

REPORT INFORMATION
  Report Type: Spontaneous
  Country: US (occurrence: US)
  Receive Date: 20170726
  Receipt Date: 20170726
  Transmission Date: 20171127
  Serious: No
  Sender: FDA-Public Use
  Company Number: US-PFIZER INC-2017320160

PATIENT
  Sex: Female

DRUGS (2)
  1. SERTRALINE HCL [Suspect]
     Active Substance: SERTRALINE HYDROCHLORIDE
     Dosage: 100 MG, UNK
  2. METHOTREXATE SODIUM. [Suspect]
     Active Substance: METHOTREXATE SODIUM
     Dosage: 20 MG, WEEKLY

REACTIONS (16)
  - Back pain [Unknown]
  - Dyspnoea [Unknown]
  - Red cell distribution width increased [Unknown]
  - Joint range of motion decreased [Unknown]
  - Pain [Unknown]
  - Anxiety [Unknown]
  - Haematocrit increased [Unknown]
  - Musculoskeletal stiffness [Unknown]
  - Mean cell volume decreased [Unknown]
  - Nodule [Unknown]
  - Arthralgia [Unknown]
  - Fall [Unknown]
  - Poor quality sleep [Unknown]
  - Pain in extremity [Unknown]
  - Depression [Unknown]
  - Peripheral swelling [Unknown]
